FAERS Safety Report 5010429-9 (Version None)
Quarter: 2006Q2

REPORT INFORMATION
  Report Type: 
  Country: None (occurrence: None)
  Receive Date: 20060525
  Receipt Date: 20060519
  Transmission Date: 20061013
  Serious: Yes (Other)
  Sender: FDA-Public Use
  Company Number: PHBS2006RU07540

PATIENT
  Age: 86 Year
  Sex: Female

DRUGS (2)
  1. MIACALCIN [Suspect]
     Indication: SENILE OSTEOPOROSIS
     Dosage: 200 IU/DAY
     Route: 045
     Dates: end: 20060515
  2. ALFACALCIDOL [Suspect]
     Indication: SENILE OSTEOPOROSIS

REACTIONS (1)
  - VISUAL ACUITY REDUCED [None]
